FAERS Safety Report 5495642-9 (Version None)
Quarter: 2007Q4

REPORT INFORMATION
  Report Type: 
  Country: None (occurrence: None)
  Receive Date: 20071025
  Receipt Date: 20071015
  Transmission Date: 20080405
  Serious: Yes (Hospitalization)
  Sender: FDA-Public Use
  Company Number: US-JNJFOC-20071004058

PATIENT
  Sex: Female
  Weight: 105.24 kg

DRUGS (14)
  1. DURAGESIC-100 [Suspect]
     Indication: PAIN
     Route: 062
  2. GABAPENTIN [Concomitant]
     Indication: MOOD SWINGS
     Route: 048
  3. GABAPENTIN [Concomitant]
     Indication: NEURALGIA
     Route: 048
  4. BACLOFEN [Concomitant]
     Route: 048
  5. DETROL [Concomitant]
     Indication: URINARY INCONTINENCE
     Route: 048
  6. BENTYL [Concomitant]
     Indication: FAECAL INCONTINENCE
     Route: 048
  7. PROZAC [Concomitant]
     Indication: DEPRESSION
     Route: 048
  8. ANTIVERT [Concomitant]
     Indication: VERTIGO
     Route: 048
  9. TRAMADOL HCL [Concomitant]
     Indication: INTERVERTEBRAL DISC DEGENERATION
     Route: 048
  10. GLIPIZIDE [Concomitant]
     Indication: DIABETES MELLITUS
     Route: 048
  11. PROTONIX [Concomitant]
     Indication: GASTROINTESTINAL DISORDER
     Route: 048
  12. LUPRON DEPOT-3 [Concomitant]
     Indication: ENDOMETRIOSIS
     Route: 030
  13. VALIUM [Concomitant]
     Indication: MUSCLE RELAXANT THERAPY
     Route: 048
  14. SALBUTEROL [Concomitant]
     Route: 055

REACTIONS (1)
  - CHOLECYSTITIS INFECTIVE [None]
